FAERS Safety Report 19159824 (Version 7)
Quarter: 2023Q2

REPORT INFORMATION
  Report Type: Report from Study
  Country: JP (occurrence: JP)
  Receive Date: 20210420
  Receipt Date: 20230609
  Transmission Date: 20230722
  Serious: Yes (Hospitalization)
  Sender: FDA-Public Use
  Company Number: JP-EXELIXIS-XL18421039562

PATIENT

DRUGS (22)
  1. CABOZANTINIB [Suspect]
     Active Substance: CABOZANTINIB
     Indication: Metastatic renal cell carcinoma
     Dosage: 60 MG, QD (THREE 20 MG TABLETS)
     Route: 048
     Dates: start: 20210331
  2. ATEZOLIZUMAB [Suspect]
     Active Substance: ATEZOLIZUMAB
     Indication: Metastatic renal cell carcinoma
     Dosage: 1200 MG, Q3WEEKS (DAY 1 OF EACH 21 DAY CYCLE)
     Route: 042
     Dates: start: 20210331
  3. CORTRIL [Concomitant]
     Active Substance: HYDROCORTISONE
     Indication: Adrenal insufficiency
     Dosage: 10 MG, BID
     Route: 048
     Dates: start: 20191127, end: 20210413
  4. CORTRIL [Concomitant]
     Active Substance: HYDROCORTISONE
     Dosage: 20 MG, BID
     Route: 048
     Dates: start: 20210414, end: 20210426
  5. CORTRIL [Concomitant]
     Active Substance: HYDROCORTISONE
     Dosage: 10 MG, BID
     Route: 048
     Dates: start: 20210427
  6. LEVOTHYROXINE SODIUM [Concomitant]
     Active Substance: LEVOTHYROXINE SODIUM
     Indication: Hypothyroidism
     Dosage: 125 UG, QD
     Route: 048
     Dates: start: 20191002, end: 20210416
  7. LEVOTHYROXINE SODIUM [Concomitant]
     Active Substance: LEVOTHYROXINE SODIUM
     Dosage: 112.5 UG, QD
     Route: 048
     Dates: start: 20210417, end: 20210417
  8. LEVOTHYROXINE SODIUM [Concomitant]
     Active Substance: LEVOTHYROXINE SODIUM
     Dosage: 125 UG, QD
     Route: 048
     Dates: start: 20210418
  9. BROTIZOLAM [Concomitant]
     Active Substance: BROTIZOLAM
     Indication: Insomnia
     Dosage: 0.25 UG, QD
     Route: 048
  10. FEXOFENADINE HYDROCHLORIDE [Concomitant]
     Active Substance: FEXOFENADINE HYDROCHLORIDE
     Indication: Seasonal allergy
     Dosage: 60 MG, QD
     Route: 048
     Dates: start: 20210211, end: 20210328
  11. FLUTICASONE [Concomitant]
     Active Substance: FLUTICASONE
     Indication: Seasonal allergy
     Dosage: 1 SPRAY (2 IN 1 D)
     Route: 045
     Dates: start: 20210213, end: 20210411
  12. LEVOCABASTINE [Concomitant]
     Active Substance: LEVOCABASTINE
     Indication: Seasonal allergy
     Dosage: 0.025 % 4 IN 1D
     Route: 047
     Dates: start: 20210213, end: 20210411
  13. MAGNESIUM OXIDE [Concomitant]
     Active Substance: MAGNESIUM OXIDE
     Indication: Constipation
     Dosage: 2 TABLET (1 IN 1 AS REQUIRED)
     Route: 048
     Dates: start: 20200229
  14. APRONALIDE\CAFFEINE\IBUPROFEN [Concomitant]
     Active Substance: APRONALIDE\CAFFEINE\IBUPROFEN
     Indication: Periodontal disease
     Dosage: 2 TABLET (1 IN 1 AS REQUIRED)
     Route: 048
  15. Azunol [Concomitant]
     Indication: Stomatitis
     Dosage: 0.033 %, TID
     Route: 061
     Dates: start: 20210419, end: 20210421
  16. SENNOSIDES [Concomitant]
     Active Substance: SENNOSIDES
     Indication: Constipation
     Dosage: 24 MG 1 IN 1 AS REQUIRED
     Route: 048
     Dates: start: 20210420, end: 20210420
  17. MAGNESIUM OXIDE [Concomitant]
     Active Substance: MAGNESIUM OXIDE
     Indication: Constipation
     Dosage: 330 MG 1 IN 1 AS REQUIRED
     Route: 048
     Dates: start: 20210421, end: 20210425
  18. ACETAMINOPHEN [Concomitant]
     Active Substance: ACETAMINOPHEN
     Indication: Stomatitis
     Dosage: 600 MG 1 IN 1 AS REQUIRED
     Dates: start: 20210415, end: 20210419
  19. ACETAMINOPHEN [Concomitant]
     Active Substance: ACETAMINOPHEN
     Dosage: 500 MG 4 IN 1 D
     Route: 048
     Dates: start: 20210420, end: 20210422
  20. SODIUM GUALENATE MONOHYDRATE [Concomitant]
     Active Substance: SODIUM GUALENATE MONOHYDRATE
     Indication: Stomatitis
     Dosage: 4 % 1 IN 1 AS REQUIRED
     Route: 048
     Dates: start: 20210415, end: 20210430
  21. SODIUM GUALENATE MONOHYDRATE [Concomitant]
     Active Substance: SODIUM GUALENATE MONOHYDRATE
     Indication: Prophylaxis
     Dosage: 4 % 1 IN 1 AS REQUIRED
     Route: 048
     Dates: start: 20210501, end: 20210603
  22. DEXAMETHASONE AMEL [Concomitant]
     Indication: Stomatitis
     Dosage: 0.1 %, PRN
     Route: 061
     Dates: start: 20210415, end: 20210417

REACTIONS (7)
  - Malaise [Recovered/Resolved]
  - Pyrexia [Recovered/Resolved]
  - Fibrin D dimer increased [Recovered/Resolved]
  - White blood cell count decreased [Recovered/Resolved]
  - Platelet count decreased [Recovered/Resolved]
  - Alanine aminotransferase increased [Recovered/Resolved]
  - Aspartate aminotransferase increased [Recovered/Resolved]

NARRATIVE: CASE EVENT DATE: 20210403
